FAERS Safety Report 7075087-0 (Version None)
Quarter: 2010Q4

REPORT INFORMATION
  Report Type: 
  Country: None (occurrence: None)
  Receive Date: 20101029
  Receipt Date: 20100329
  Transmission Date: 20110411
  Serious: No
  Sender: FDA-Public Use
  Company Number: US-WYE-H14340810

PATIENT
  Age: 50 Year
  Sex: Female

DRUGS (6)
  1. ALAVERT D-12 [Suspect]
  2. FLONASE [Suspect]
  3. ZYRTEC-D 12 HOUR [Suspect]
  4. NASONEX [Suspect]
  5. CLARITIN-D [Suspect]
  6. FEXOFENADINE HYDROCHLORIDE/PSEUDOEPHEDRINE HYDROCHLORIDE [Suspect]

REACTIONS (1)
  - DRUG INEFFECTIVE [None]
